FAERS Safety Report 13638143 (Version 1)
Quarter: 2017Q2

REPORT INFORMATION
  Report Type: Spontaneous
  Country: JP (occurrence: JP)
  Receive Date: 20170609
  Receipt Date: 20170609
  Transmission Date: 20170830
  Serious: Yes (Hospitalization, Other)
  Sender: FDA-Public Use
  Company Number: JP-ASTRAZENECA-2017SE59284

PATIENT
  Age: 73 Year
  Sex: Male
  Weight: 64 kg

DRUGS (1)
  1. IRESSA [Suspect]
     Active Substance: GEFITINIB
     Indication: LUNG ADENOCARCINOMA
     Route: 048
     Dates: start: 20140908, end: 20161121

REACTIONS (7)
  - Oxygen saturation decreased [Recovered/Resolved]
  - Oesophageal compression [Unknown]
  - Malignant neoplasm progression [Unknown]
  - Interstitial lung disease [Unknown]
  - Dermatitis acneiform [Unknown]
  - Hypoxia [Unknown]
  - Musculoskeletal pain [Unknown]

NARRATIVE: CASE EVENT DATE: 20150919
